FAERS Safety Report 14213624 (Version 1)
Quarter: 2017Q4

REPORT INFORMATION
  Report Type: Spontaneous
  Country: US (occurrence: None)
  Receive Date: 20171122
  Receipt Date: 20171122
  Transmission Date: 20180321
  Serious: Yes (Hospitalization)
  Sender: FDA-Public Use
  Company Number: None

PATIENT
  Age: 84 Year
  Sex: Female

DRUGS (1)
  1. TOBRAMYCIN 300MG/5ML [Suspect]
     Active Substance: TOBRAMYCIN
     Dosage: 1 VIAL BID INHALATION
     Route: 055
     Dates: start: 201709, end: 201711

REACTIONS (1)
  - Lung infection [None]

NARRATIVE: CASE EVENT DATE: 201711
